FAERS Safety Report 5373884-0 (Version None)
Quarter: 2007Q2

REPORT INFORMATION
  Report Type: 
  Country: None (occurrence: None)
  Receive Date: 20070628
  Receipt Date: 20070619
  Transmission Date: 20071010
  Serious: Yes (Other)
  Sender: FDA-Public Use
  Company Number: DE-PFIZER INC-2007051514

PATIENT
  Age: 62 Year
  Sex: Female

DRUGS (1)
  1. CLINDAMYCIN HCL [Suspect]
     Indication: TOOTH INFECTION
     Route: 048
     Dates: start: 20070604, end: 20070611

REACTIONS (6)
  - DIARRHOEA [None]
  - ERYTHEMA [None]
  - LEUKOCYTOSIS [None]
  - LIVER FUNCTION TEST ABNORMAL [None]
  - PRURITUS [None]
  - VOMITING [None]
